FAERS Safety Report 15731770 (Version 2)
Quarter: 2019Q1

REPORT INFORMATION
  Report Type: Spontaneous
  Country: FR (occurrence: FR)
  Receive Date: 20181217
  Receipt Date: 20190125
  Transmission Date: 20190417
  Serious: Yes (Death, Hospitalization, Other)
  Sender: FDA-Public Use
  Company Number: FR-MYLANLABS-13X-056-1148219-00

PATIENT
  Age: 74 Year
  Sex: Female

DRUGS (18)
  1. FLUCONAZOLE. [Suspect]
     Active Substance: FLUCONAZOLE
     Indication: HYPERTENSION
     Dosage: 1 DOSAGE FORM, QD
     Route: 048
     Dates: end: 20130811
  2. LOXAPAC                            /00401801/ [Suspect]
     Active Substance: LOXAPINE
     Indication: DEMENTIA
     Dosage: 75MILLIGRAMQD
     Route: 048
     Dates: start: 20130729, end: 20130811
  3. ABILIFY [Suspect]
     Active Substance: ARIPIPRAZOLE
     Indication: DEMENTIA
     Dosage: .5DOSAGE FORMSQD
     Route: 048
     Dates: start: 201307, end: 20130811
  4. ABILIFY [Suspect]
     Active Substance: ARIPIPRAZOLE
     Dosage: 1 DOSAGE FORM
     Route: 048
     Dates: start: 201307, end: 20130811
  5. XANAX [Suspect]
     Active Substance: ALPRAZOLAM
     Dosage: UNK
     Route: 048
     Dates: end: 20130811
  6. LOXAPAC                            /00401801/ [Suspect]
     Active Substance: LOXAPINE
     Dosage: 25 MILLIGRAM
     Route: 048
     Dates: start: 20130729, end: 20130811
  7. LANTUS [Concomitant]
     Active Substance: INSULIN GLARGINE
     Indication: INSULIN-REQUIRING TYPE 2 DIABETES MELLITUS
     Dosage: 22IU (INTERNATIONAL UNIT)QD
     Route: 058
     Dates: end: 20130811
  8. NOVORAPID [Concomitant]
     Active Substance: INSULIN ASPART
     Indication: INSULIN-REQUIRING TYPE 2 DIABETES MELLITUS
     Dosage: 28IU (INTERNATIONAL UNIT)QD
     Route: 058
     Dates: end: 20130811
  9. ZOPICLONE [Suspect]
     Active Substance: ZOPICLONE
     Dosage: UNK UNK, QD
     Dates: end: 20130811
  10. PRETERAX                           /01421201/ [Suspect]
     Active Substance: INDAPAMIDE\PERINDOPRIL
     Indication: HYPERTENSION
     Dosage: FORM STRENGTH: 10/2.5 MG
     Route: 048
     Dates: end: 20130811
  11. LAMALINE (ACETAMINOPHEN\CAFFEINE\OPIUM) [Suspect]
     Active Substance: ACETAMINOPHEN\CAFFEINE\OPIUM
     Indication: PAIN
     Dosage: 3CAPSULEQD
     Route: 048
     Dates: end: 20130811
  12. CITALOPRAM [Suspect]
     Active Substance: CITALOPRAM HYDROBROMIDE
     Indication: DEPRESSION
     Dosage: 20MILLIGRAMQD
     Route: 048
     Dates: end: 20130811
  13. PRETERAX                           /01421201/ [Suspect]
     Active Substance: INDAPAMIDE\PERINDOPRIL
     Dosage: 3DOSAGE FORMSQD
     Dates: start: 20130811
  14. HUMALOG [Concomitant]
     Active Substance: INSULIN LISPRO
     Indication: PRODUCT USED FOR UNKNOWN INDICATION
     Dosage: UNK
  15. XANAX [Suspect]
     Active Substance: ALPRAZOLAM
     Indication: ANXIETY
     Dosage: .25MILLIGRAMQD
     Route: 048
     Dates: end: 20130811
  16. XANAX [Suspect]
     Active Substance: ALPRAZOLAM
     Dosage: 1 DOSAGE FORM
     Dates: end: 20130811
  17. ZOPICLONE [Suspect]
     Active Substance: ZOPICLONE
     Indication: SLEEP DISORDER
     Dosage: 1DOSAGE FORMSQD
     Route: 048
     Dates: end: 20130811
  18. LOVENOX [Concomitant]
     Active Substance: ENOXAPARIN SODIUM
     Indication: PRODUCT USED FOR UNKNOWN INDICATION
     Dosage: UNK

REACTIONS (8)
  - Death [Fatal]
  - Pneumonia aspiration [Fatal]
  - Lung disorder [Fatal]
  - Somnolence [Fatal]
  - Acute kidney injury [Fatal]
  - Inflammation [Fatal]
  - Hyperglycaemia [Fatal]
  - Diabetic hyperosmolar coma [Fatal]

NARRATIVE: CASE EVENT DATE: 20130811
